FAERS Safety Report 6963620-6 (Version None)
Quarter: 2010Q3

REPORT INFORMATION
  Report Type: 
  Country: None (occurrence: None)
  Receive Date: 20100902
  Receipt Date: 20100820
  Transmission Date: 20110219
  Serious: Yes (Hospitalization)
  Sender: FDA-Public Use
  Company Number: US-ELI_LILLY_AND_COMPANY-US201007001199

PATIENT
  Sex: Female

DRUGS (7)
  1. FORTEO [Suspect]
     Indication: OSTEOPOROSIS
     Dosage: 20 UG, DAILY (1/D)
     Dates: start: 20091207
  2. PAXIL [Concomitant]
     Dosage: 20 MG, DAILY (1/D)
  3. OXYCONTIN [Concomitant]
  4. TYLENOL (CAPLET) [Concomitant]
  5. VITAMIN D3 [Concomitant]
     Dosage: 3000 U, DAILY (1/D)
  6. ASPIRIN [Concomitant]
     Dosage: 81 MG, DAILY (1/D)
  7. ALLEGRA [Concomitant]
     Dosage: UNK, AS NEEDED

REACTIONS (2)
  - CERVICAL VERTEBRAL FRACTURE [None]
  - FALL [None]
